FAERS Safety Report 6569654-8 (Version None)
Quarter: 2010Q1

REPORT INFORMATION
  Report Type: 
  Country: None (occurrence: None)
  Receive Date: 20100204
  Receipt Date: 20100121
  Transmission Date: 20100710
  Serious: Yes (Hospitalization, Other)
  Sender: FDA-Public Use
  Company Number: PHHY2010US04366

PATIENT
  Age: 70 Year
  Sex: Male

DRUGS (4)
  1. METOPROLOL TARTRATE [Suspect]
  2. AMIODARONE HCL [Suspect]
     Indication: ARRHYTHMIA
     Dosage: 800 MG DAILY
     Route: 048
  3. AMIODARONE HCL [Suspect]
     Dosage: 400 MG DAILY
     Route: 048
  4. LISINOPRIL [Concomitant]

REACTIONS (6)
  - ARRHYTHMIA [None]
  - ARTHRALGIA [None]
  - C-REACTIVE PROTEIN INCREASED [None]
  - LEUKOCYTOCLASTIC VASCULITIS [None]
  - PURPURA [None]
  - SKIN LESION [None]
